FAERS Safety Report 14568401 (Version 2)
Quarter: 2020Q3

REPORT INFORMATION
  Report Type: Report from Study
  Country: US (occurrence: US)
  Receive Date: 20180223
  Receipt Date: 20180302
  Transmission Date: 20201105
  Serious: Yes (Hospitalization, Other)
  Sender: FDA-Public Use
  Company Number: US-PFIZER INC-2018071314

PATIENT
  Age: 13 Year
  Sex: Male
  Weight: 33.3 kg

DRUGS (5)
  1. CEFIXIME. [Concomitant]
     Active Substance: CEFIXIME
     Indication: PROPHYLAXIS AGAINST DIARRHOEA
     Dosage: 200 MG, DAILY X21
     Route: 048
     Dates: start: 20180123, end: 20180212
  2. TALAZOPARIB. [Suspect]
     Active Substance: TALAZOPARIB
     Indication: EWING^S SARCOMA
     Dosage: UNK, CYCLIC
     Route: 048
     Dates: start: 20180102, end: 20180107
  3. TALAZOPARIB. [Suspect]
     Active Substance: TALAZOPARIB
     Dosage: 500 UG, DAILY, CYCLIC
     Route: 048
     Dates: start: 20180131
  4. IRINOTECAN HCL [Suspect]
     Active Substance: IRINOTECAN HYDROCHLORIDE
     Dosage: 48 MG, DAILY X5, CYCLIC
     Route: 042
     Dates: start: 20180201
  5. IRINOTECAN HCL [Suspect]
     Active Substance: IRINOTECAN HYDROCHLORIDE
     Indication: EWING^S SARCOMA
     Dosage: UNK, CYCLIC
     Route: 042
     Dates: start: 20180102, end: 20180107

REACTIONS (6)
  - Thrombocytopenia [Unknown]
  - Haemoglobin decreased [Unknown]
  - Pyrexia [Unknown]
  - Epistaxis [Not Recovered/Not Resolved]
  - Neutropenia [Not Recovered/Not Resolved]
  - Neutropenia [Unknown]

NARRATIVE: CASE EVENT DATE: 2018
